FAERS Safety Report 15640531 (Version 1)
Quarter: 2018Q4

REPORT INFORMATION
  Report Type: Spontaneous
  Country: SE (occurrence: SE)
  Receive Date: 20181120
  Receipt Date: 20181120
  Transmission Date: 20190205
  Serious: Yes (Other)
  Sender: FDA-Public Use
  Company Number: SE-TEVA-2018-SE-976389

PATIENT
  Age: 28 Year
  Sex: Male

DRUGS (10)
  1. KESTINE [Concomitant]
     Active Substance: EBASTINE
     Route: 065
  2. PULMICORT TURBUHALER [Concomitant]
     Active Substance: BUDESONIDE
     Route: 065
  3. METHYLPHENIDATE. [Suspect]
     Active Substance: METHYLPHENIDATE
     Indication: ATTENTION DEFICIT/HYPERACTIVITY DISORDER
     Route: 048
     Dates: start: 20180920
  4. LECROLYN [Concomitant]
     Route: 065
  5. OPATANOL [Concomitant]
     Active Substance: OLOPATADINE
     Route: 065
  6. BRICANYL [Concomitant]
     Active Substance: TERBUTALINE SULFATE
     Route: 065
  7. MOMETASONE [Concomitant]
     Active Substance: MOMETASONE
     Route: 065
  8. SERTRALINE [Concomitant]
     Active Substance: SERTRALINE HYDROCHLORIDE
     Route: 065
  9. MIRTAZAPIN [Concomitant]
     Active Substance: MIRTAZAPINE
     Route: 065
  10. DYMISTA [Concomitant]
     Active Substance: AZELASTINE HYDROCHLORIDE\FLUTICASONE PROPIONATE
     Route: 065

REACTIONS (2)
  - Visual impairment [Unknown]
  - Skin reaction [Unknown]

NARRATIVE: CASE EVENT DATE: 20181004
